FAERS Safety Report 7906824-8 (Version None)
Quarter: 2011Q4

REPORT INFORMATION
  Report Type: 
  Country: None (occurrence: None)
  Receive Date: 20111110
  Receipt Date: 20111102
  Transmission Date: 20120403
  Serious: Yes (Life-Threatening, Hospitalization)
  Sender: FDA-Public Use
  Company Number: US-B.I. PHARMACEUTICALS,INC./RIDGEFIELD-2011-EU-00070GD

PATIENT
  Age: 74 Year
  Sex: Female

DRUGS (2)
  1. DABIGATRAN ETEXILATE [Suspect]
     Indication: THROMBOSIS PROPHYLAXIS
  2. DABIGATRAN ETEXILATE [Suspect]
     Indication: CEREBROVASCULAR ACCIDENT PROPHYLAXIS
     Dosage: 150 MG

REACTIONS (7)
  - HAEMOTHORAX [None]
  - RESPIRATORY DISTRESS [None]
  - INTERNATIONAL NORMALISED RATIO INCREASED [None]
  - COAGULOPATHY [None]
  - GASTROINTESTINAL HAEMORRHAGE [None]
  - PLEURAL EFFUSION [None]
  - ACTIVATED PARTIAL THROMBOPLASTIN TIME PROLONGED [None]
